FAERS Safety Report 8572951-8 (Version None)
Quarter: 2012Q2

REPORT INFORMATION
  Report Type: 
  Country: None (occurrence: None)
  Receive Date: 20120423
  Receipt Date: 20090103
  Transmission Date: 20120825
  Serious: Yes (Life-Threatening)
  Sender: FDA-Public Use
  Company Number: PHEH2008US11465

PATIENT
  Age: 72 Year
  Sex: Male

DRUGS (1)
  1. EXJADE [Suspect]
     Indication: CHRONIC MYELOMONOCYTIC LEUKAEMIA
     Dosage: 2000 MG, QD
     Dates: start: 20080908, end: 20081205

REACTIONS (2)
  - BLOOD IRON INCREASED [None]
  - ACUTE MYELOID LEUKAEMIA [None]
